FAERS Safety Report 11316264 (Version 2)
Quarter: 2015Q3

REPORT INFORMATION
  Report Type: Report from Study
  Country: MX (occurrence: MX)
  Receive Date: 20150728
  Receipt Date: 20150813
  Transmission Date: 20151125
  Serious: Yes (Hospitalization, Other)
  Sender: FDA-Public Use
  Company Number: PHHY2015MX087972

PATIENT
  Sex: Male

DRUGS (5)
  1. FOLINIC ACID [Concomitant]
     Active Substance: LEUCOVORIN
     Indication: ANAEMIA
     Dosage: 1 DF, UNK (EVERY 3 DAYS)
     Route: 065
  2. MYFORTIC [Suspect]
     Active Substance: MYCOPHENOLATE SODIUM
     Indication: RENAL TRANSPLANT
     Dosage: 3.5 DF, QD
     Route: 065
     Dates: start: 20140428
  3. MYFORTIC [Suspect]
     Active Substance: MYCOPHENOLATE SODIUM
     Dosage: 0.75 DF, QD (1/2 TABLET IN THE MORNING AND 1/4 TABLET IN THE NIGHT)
     Route: 065
  4. TACROLIMUS. [Concomitant]
     Active Substance: TACROLIMUS
     Indication: IMMUNOSUPPRESSION
     Dosage: 2 DF, BID, (4  (1 G) 2 IN THE MORNING AND 2 IN THE NIGHT))
     Route: 065
  5. PREDNISONE. [Concomitant]
     Active Substance: PREDNISONE
     Indication: IMMUNOSUPPRESSION
     Dosage: 5 MG, QD
     Route: 065

REACTIONS (6)
  - Anaemia [Recovering/Resolving]
  - Herpes virus infection [Recovered/Resolved]
  - Arrhythmia [Recovered/Resolved]
  - Wrong technique in product usage process [Unknown]
  - Papilloma [Recovered/Resolved]
  - Immunodeficiency [Recovering/Resolving]
